FAERS Safety Report 25541297 (Version 2)
Quarter: 2025Q3

REPORT INFORMATION
  Report Type: Report from Study
  Country: CA (occurrence: CA)
  Receive Date: 20250711
  Receipt Date: 20250815
  Transmission Date: 20251021
  Serious: No
  Sender: ROCHE
  Company Number: CA-002147023-NVSC2025CA108445

PATIENT
  Age: 44 Year
  Sex: Female

DRUGS (2)
  1. XOLAIR [Suspect]
     Active Substance: OMALIZUMAB
     Indication: Chronic spontaneous urticaria
     Route: 058
     Dates: start: 20241029
  2. XOLAIR [Suspect]
     Active Substance: OMALIZUMAB
     Route: 065
     Dates: end: 202503

REACTIONS (3)
  - Urticaria [Unknown]
  - Symptom recurrence [Unknown]
  - Insomnia [Unknown]
